FAERS Safety Report 6008994-8 (Version None)
Quarter: 2008Q4

REPORT INFORMATION
  Report Type: 
  Country: None (occurrence: None)
  Receive Date: 20081216
  Receipt Date: 20081205
  Transmission Date: 20090506
  Serious: Yes (Hospitalization, Other)
  Sender: FDA-Public Use
  Company Number: 2008US002752

PATIENT
  Age: 63 Year
  Sex: Male
  Weight: 65.3 kg

DRUGS (8)
  1. LEXISCAN [Suspect]
     Indication: CARDIAC STRESS TEST
     Dosage: 0.4 MG, IV NOS
     Route: 042
     Dates: start: 20081010, end: 20081010
  2. LORTAB 10/500 (HYDROCODONE BITRARTRATE) [Concomitant]
  3. ASPIRIN [Concomitant]
  4. LOPRESSOR [Concomitant]
  5. LISINOPRIL [Concomitant]
  6. MOTRIN [Concomitant]
  7. ATIVAN [Concomitant]
  8. MYOVIEW (TETROFOSMIN) [Concomitant]

REACTIONS (7)
  - ANGIOEDEMA [None]
  - BLOOD PRESSURE INCREASED [None]
  - HYPERSENSITIVITY [None]
  - MYOCARDIAL INFARCTION [None]
  - MYOCARDIAL ISCHAEMIA [None]
  - RESPIRATORY DISTRESS [None]
  - SINUS TACHYCARDIA [None]
